FAERS Safety Report 10094210 (Version 2)
Quarter: 2014Q2

REPORT INFORMATION
  Report Type: Spontaneous
  Country: US (occurrence: US)
  Receive Date: 20140422
  Receipt Date: 20140604
  Transmission Date: 20141212
  Serious: No
  Sender: FDA-Public Use
  Company Number: US-009507513-1404USA005908

PATIENT
  Sex: Female
  Weight: 76.19 kg

DRUGS (5)
  1. DULERA [Suspect]
     Indication: ASTHMA
     Dosage: 2 PUFFS EVERY DAY, BID/ ONCE A DAY
     Route: 048
     Dates: start: 20130910
  2. DULERA [Suspect]
     Dosage: 2 PUFFS EVERY DAY, BID/ ONCE A DAY
     Route: 048
  3. DULERA [Suspect]
     Dosage: 2 PUFFS EVERY DAY, BID/ ONCE A DAY
     Route: 048
  4. SINGULAIR [Concomitant]
  5. QVAR [Concomitant]

REACTIONS (4)
  - Erythema [Recovered/Resolved]
  - Drug dose omission [Unknown]
  - Product quality issue [Unknown]
  - Rash [Recovered/Resolved]
